FAERS Safety Report 5904306-6 (Version None)
Quarter: 2008Q4

REPORT INFORMATION
  Report Type: 
  Country: None (occurrence: None)
  Receive Date: 20081001
  Receipt Date: 20080807
  Transmission Date: 20090506
  Serious: No
  Sender: FDA-Public Use
  Company Number: US-BRISTOL-MYERS SQUIBB COMPANY-14292643

PATIENT
  Age: 63 Year
  Sex: Female
  Weight: 68 kg

DRUGS (10)
  1. SPRYCEL [Suspect]
     Indication: MASTOCYTOSIS
     Dates: start: 20080101
  2. SYNTHROID [Concomitant]
  3. FOSAMAX [Concomitant]
  4. BUSPAR [Concomitant]
  5. TRAZODONE HCL [Concomitant]
  6. ATENOLOL [Concomitant]
  7. LISINOPRIL [Concomitant]
  8. CALCIUM [Concomitant]
  9. FLECAINIDE ACETATE [Concomitant]
  10. MULTI-VITAMIN [Concomitant]

REACTIONS (1)
  - ALOPECIA [None]
